FAERS Safety Report 8406974-6 (Version None)
Quarter: 2012Q2

REPORT INFORMATION
  Report Type: 
  Country: None (occurrence: None)
  Receive Date: 20120529
  Receipt Date: 20080918
  Transmission Date: 20120825
  Serious: Yes (Death, Hospitalization)
  Sender: FDA-Public Use
  Company Number: 02100-JPN-05-0468

PATIENT
  Age: 73 Year
  Sex: Male
  Weight: 58 kg

DRUGS (13)
  1. TIARYL (TIAPRIDE HYDROCHLORIDE) [Concomitant]
  2. LAC B (LACTOBACILLUS BIFUDIS, LYOPHILIZED) [Concomitant]
  3. OZEX (TOSUFLOXACIN TOSILATE) [Concomitant]
  4. PLETAL [Suspect]
     Indication: CEREBRAL INFARCTION
     Dosage: 100 MG, BID, ORAL
     Route: 048
     Dates: start: 20040901, end: 20071007
  5. LOXONIN (LOXOPROFEN SODIUM) [Concomitant]
  6. BFLUID (MIXED AMINO ACID/CARBOHYDRATE ELECTROLYTE/VITAMIN COMBINE) [Concomitant]
  7. POLLAKISU (OXYBUTYNIN HYDROCHLORIDE) [Concomitant]
  8. GOSHA-JINKI-GAN (GOSHA-JINKI-GAN) [Concomitant]
  9. ACTIT (MALTOSE, SODIUM ACETATE, POTASSIUM CHLORIDE, SODIUM CHLORIDE, P [Concomitant]
  10. CEREKINON (TRIMEBUTINE MALEATE) [Concomitant]
  11. SERMION (NICERGOLINE) [Concomitant]
  12. GAISAL (AZULENE SULFONATE SODIUM/L-GULTAMINE) [Concomitant]
  13. LACTATED RINGER (LACTATED RINGER'S SOLUTION) [Concomitant]

REACTIONS (12)
  - PNEUMONIA [None]
  - DEHYDRATION [None]
  - DECREASED APPETITE [None]
  - BONE CANCER METASTATIC [None]
  - HYPOPROTEINAEMIA [None]
  - GINGIVITIS [None]
  - LOSS OF CONSCIOUSNESS [None]
  - MALNUTRITION [None]
  - PROSTATE CANCER [None]
  - MALAISE [None]
  - MULTI-ORGAN FAILURE [None]
  - PERIODONTITIS [None]
